FAERS Safety Report 15729344 (Version 1)
Quarter: 2018Q4

REPORT INFORMATION
  Report Type: Report from Study
  Country: US (occurrence: US)
  Receive Date: 20181217
  Receipt Date: 20181217
  Transmission Date: 20190205
  Serious: Yes (Other)
  Sender: FDA-Public Use
  Company Number: US-JNJFOC-20181214819

PATIENT
  Sex: Female

DRUGS (1)
  1. IMBRUVICA [Suspect]
     Active Substance: IBRUTINIB
     Indication: CHRONIC LYMPHOCYTIC LEUKAEMIA
     Route: 048
     Dates: end: 2018

REACTIONS (6)
  - Off label use [Unknown]
  - Depressed mood [Not Recovered/Not Resolved]
  - Bone pain [Not Recovered/Not Resolved]
  - Incorrect dose administered [Unknown]
  - Gait disturbance [Unknown]
  - Neuropathy peripheral [Recovered/Resolved]
